FAERS Safety Report 5900521-6 (Version None)
Quarter: 2008Q3

REPORT INFORMATION
  Report Type: 
  Country: None (occurrence: None)
  Receive Date: 20080926
  Receipt Date: 20080904
  Transmission Date: 20090109
  Serious: No
  Sender: FDA-Public Use
  Company Number: US-B.I. PHARMACEUTICALS,INC./RIDGEFIELD-2008-BP-14042BP

PATIENT
  Age: 67 Year
  Sex: Female

DRUGS (5)
  1. MICARDIS HCT [Suspect]
     Indication: HYPERTENSION
     Route: 048
     Dates: start: 20080814
  2. CO Q10 [Concomitant]
     Indication: BLOOD CHOLESTEROL INCREASED
     Route: 048
     Dates: start: 20080601
  3. LISINOPRIL HCT [Concomitant]
     Indication: HYPERTENSION
     Route: 048
     Dates: end: 20080813
  4. NORVASC [Concomitant]
     Indication: HYPERTENSION
     Route: 048
  5. TOPROL-XL [Concomitant]
     Indication: HYPERTENSION
     Route: 048

REACTIONS (3)
  - ARTHRALGIA [None]
  - JOINT SWELLING [None]
  - OEDEMA [None]
